FAERS Safety Report 11203077 (Version 2)
Quarter: 2015Q3

REPORT INFORMATION
  Report Type: Spontaneous
  Country: US (occurrence: US)
  Receive Date: 20150619
  Receipt Date: 20150812
  Transmission Date: 20151125
  Serious: Yes (Death, Other)
  Sender: FDA-Public Use
  Company Number: US-INCYTE CORPORATION-2015IN002668

PATIENT
  Age: 79 Year
  Sex: Female
  Weight: 51.25 kg

DRUGS (9)
  1. DULCOLAX (BISACODYL) [Concomitant]
     Active Substance: BISACODYL
  2. K-DUR [Concomitant]
     Active Substance: POTASSIUM CHLORIDE
  3. JAKAFI [Suspect]
     Active Substance: RUXOLITINIB
     Indication: MYELOFIBROSIS
     Dosage: 10 MG, BID
     Route: 048
     Dates: start: 20150528, end: 20150602
  4. CELEXA [Concomitant]
     Active Substance: CITALOPRAM HYDROBROMIDE
  5. PREPARATION H                      /00611001/ [Concomitant]
     Active Substance: PHENYLMERCURIC NITRATE\SHARK LIVER OIL\YEAST
  6. WARFARIN [Concomitant]
     Active Substance: WARFARIN
     Dosage: 5 MG DAILY
  7. ALPRAZOLAM. [Concomitant]
     Active Substance: ALPRAZOLAM
     Dosage: 0.25 MG AS NEEDED
     Route: 048
  8. POTASSIUM [Concomitant]
     Active Substance: POTASSIUM
     Route: 048
  9. ANTACID                            /00018101/ [Concomitant]
     Active Substance: ALUMINUM HYDROXIDE\DIMETHICONE\MAGNESIUM HYDROXIDE

REACTIONS (13)
  - Fatigue [Fatal]
  - Dysphonia [Unknown]
  - Haematoma [Unknown]
  - Joint swelling [Unknown]
  - Splenomegaly [Fatal]
  - Failure to thrive [Fatal]
  - Early satiety [Unknown]
  - Peripheral swelling [Unknown]
  - Asthenia [Fatal]
  - Fall [Unknown]
  - Weight decreased [Unknown]
  - Respiratory failure [Fatal]
  - Dyspnoea [Unknown]

NARRATIVE: CASE EVENT DATE: 20150611
